FAERS Safety Report 4767846-1 (Version None)
Quarter: 2005Q3

REPORT INFORMATION
  Report Type: 
  Country: None (occurrence: None)
  Receive Date: 20050912
  Receipt Date: 20011026
  Transmission Date: 20060218
  Serious: Yes (Hospitalization, Disabling)
  Sender: FDA-Public Use
  Company Number: 01-0085

PATIENT
  Age: 50 Year
  Sex: Female

DRUGS (3)
  1. MEFENAMIC ACID [Suspect]
     Indication: DYSMENORRHOEA
     Dosage: 750 MG DAILY, PO
     Route: 048
     Dates: start: 19930801, end: 19950201
  2. PROVERA [Concomitant]
  3. SLOW FE (FERROUS SULFATE) [Concomitant]

REACTIONS (14)
  - ANAL FISSURE [None]
  - CHOLELITHIASIS [None]
  - CONDITION AGGRAVATED [None]
  - CONSTIPATION [None]
  - DRUG INEFFECTIVE [None]
  - DUODENAL ULCER [None]
  - GASTROOESOPHAGEAL REFLUX DISEASE [None]
  - GOITRE [None]
  - HYSTERECTOMY [None]
  - NERVE INJURY [None]
  - ORAL INTAKE REDUCED [None]
  - OSTEOPENIA [None]
  - THYROID CYST [None]
  - WEIGHT DECREASED [None]
